FAERS Safety Report 8583173-9 (Version None)
Quarter: 2012Q3

REPORT INFORMATION
  Report Type: 
  Country: None (occurrence: None)
  Receive Date: 20120809
  Receipt Date: 20120807
  Transmission Date: 20120928
  Serious: Yes (Death)
  Sender: FDA-Public Use
  Company Number: US-ABBOTT-12P-163-0965552-00

PATIENT
  Sex: Female

DRUGS (6)
  1. DARVOCET [Interacting]
     Indication: PRODUCT USED FOR UNKNOWN INDICATION
  2. PROPOFOL [Interacting]
     Indication: PRODUCT USED FOR UNKNOWN INDICATION
  3. VICODIN [Suspect]
     Indication: PRODUCT USED FOR UNKNOWN INDICATION
  4. POLIGRIP [Interacting]
     Indication: PRODUCT USED FOR UNKNOWN INDICATION
  5. FIXODENT [Interacting]
     Indication: PRODUCT USED FOR UNKNOWN INDICATION
  6. HEPARIN [Interacting]
     Indication: PRODUCT USED FOR UNKNOWN INDICATION

REACTIONS (3)
  - DRUG INTERACTION [None]
  - MULTIPLE INJURIES [None]
  - TOXICITY TO VARIOUS AGENTS [None]
